FAERS Safety Report 7884395-2 (Version None)
Quarter: 2011Q4

REPORT INFORMATION
  Report Type: 
  Country: None (occurrence: None)
  Receive Date: 20111102
  Receipt Date: 20111101
  Transmission Date: 20120403
  Serious: Yes (Other)
  Sender: FDA-Public Use
  Company Number: US-ROCHE-783963

PATIENT
  Sex: Male
  Weight: 70.37 kg

DRUGS (4)
  1. ACETAMINOPHEN [Concomitant]
  2. CEPHALEXIN [Concomitant]
  3. HYDROCODONE BITARTRATE [Concomitant]
  4. ACCUTANE [Suspect]
     Indication: ACNE
     Dates: start: 20030601, end: 20040101

REACTIONS (4)
  - INFLAMMATORY BOWEL DISEASE [None]
  - COLITIS ULCERATIVE [None]
  - STRESS [None]
  - IRRITABLE BOWEL SYNDROME [None]
